FAERS Safety Report 5694191-2 (Version None)
Quarter: 2008Q2

REPORT INFORMATION
  Report Type: 
  Country: None (occurrence: None)
  Receive Date: 20080402
  Receipt Date: 20080318
  Transmission Date: 20081010
  Serious: Yes (Hospitalization)
  Sender: FDA-Public Use
  Company Number: 2008S1003273

PATIENT
  Age: 76 Year
  Sex: Female

DRUGS (1)
  1. ENDEP (AMITRIPTYLINE HYDROCHLORIDE) (50 MG) [Suspect]
     Indication: DEPRESSION
     Dosage: 50 MG;AT BEDTIME;ORAL
     Route: 048
     Dates: start: 20080101, end: 20080101

REACTIONS (6)
  - BLOOD ELECTROLYTES ABNORMAL [None]
  - DIZZINESS [None]
  - FALL [None]
  - SOMNOLENCE [None]
  - TRANSIENT ISCHAEMIC ATTACK [None]
  - UPPER LIMB FRACTURE [None]
